FAERS Safety Report 16428082 (Version 2)
Quarter: 2019Q3

REPORT INFORMATION
  Report Type: Spontaneous
  Country: US (occurrence: US)
  Receive Date: 20190613
  Receipt Date: 20190814
  Transmission Date: 20191004
  Serious: Yes (Other)
  Sender: FDA-Public Use
  Company Number: US-ELI_LILLY_AND_COMPANY-US201906003606

PATIENT
  Sex: Female

DRUGS (12)
  1. MELOXICAM. [Concomitant]
     Active Substance: MELOXICAM
  2. METFORMIN [Concomitant]
     Active Substance: METFORMIN HYDROCHLORIDE
  3. FENOFIBRATE. [Concomitant]
     Active Substance: FENOFIBRATE
  4. PRAVASTATIN. [Concomitant]
     Active Substance: PRAVASTATIN
  5. TALTZ [Suspect]
     Active Substance: IXEKIZUMAB
     Indication: PSORIASIS
     Dosage: 80 MG, UNKNOWN
     Route: 065
     Dates: start: 20160101
  6. AMITRIPTYLINE [Concomitant]
     Active Substance: AMITRIPTYLINE
  7. FLOXVIEW [Concomitant]
  8. LOSARTAN. [Concomitant]
     Active Substance: LOSARTAN
  9. MOBIC [Concomitant]
     Active Substance: MELOXICAM
  10. EFFEXOR [Concomitant]
     Active Substance: VENLAFAXINE HYDROCHLORIDE
  11. EVISTA [Concomitant]
     Active Substance: RALOXIFENE HYDROCHLORIDE
  12. ACIPHEX [Concomitant]
     Active Substance: RABEPRAZOLE SODIUM

REACTIONS (1)
  - Bladder cancer [Recovered/Resolved]

NARRATIVE: CASE EVENT DATE: 20190301
